FAERS Safety Report 10089611 (Version 2)
Quarter: 2014Q2

REPORT INFORMATION
  Report Type: Spontaneous
  Country: JP (occurrence: None)
  Receive Date: 20140417
  Receipt Date: 20140429
  Transmission Date: 20141212
  Serious: Yes (Other)
  Sender: FDA-Public Use
  Company Number: 2014JP010334

PATIENT
  Age: 53 Year
  Sex: Female
  Weight: 41 kg

DRUGS (4)
  1. ALOXI [Suspect]
     Indication: PROPHYLAXIS OF NAUSEA AND VOMITING
     Dosage: SINGLE
     Route: 041
     Dates: start: 20140402, end: 20140402
  2. PROEMEND [Suspect]
     Indication: PROPHYLAXIS OF NAUSEA AND VOMITING
     Route: 041
     Dates: start: 20140402, end: 20140402
  3. DECARDRON (DEXAMETHASONE SODIUM PHOSPHATE) [Concomitant]
  4. POLARAMINE (DEXCHLORPHENIRAMINE MALEATE) [Concomitant]

REACTIONS (6)
  - Dyspnoea [None]
  - Erythema [None]
  - Blood pressure increased [None]
  - Back pain [None]
  - Hypersensitivity [None]
  - Infusion related reaction [None]
